FAERS Safety Report 15651819 (Version 1)
Quarter: 2018Q4

REPORT INFORMATION
  Report Type: Spontaneous
  Country: DE (occurrence: DE)
  Receive Date: 20181123
  Receipt Date: 20181123
  Transmission Date: 20190205
  Serious: Yes (Other)
  Sender: FDA-Public Use
  Company Number: DE-TEVA-2018-DE-970125

PATIENT
  Sex: Male

DRUGS (1)
  1. DIAZEPAM ABZ TROPFEN [Suspect]
     Active Substance: DIAZEPAM
     Route: 048
     Dates: start: 20181019, end: 20181019

REACTIONS (1)
  - Drug abuse [Unknown]
